FAERS Safety Report 20579337 (Version 2)
Quarter: 2022Q4

REPORT INFORMATION
  Report Type: Spontaneous
  Country: FR (occurrence: FR)
  Receive Date: 20220310
  Receipt Date: 20221024
  Transmission Date: 20230113
  Serious: Yes (Hospitalization, Other)
  Sender: FDA-Public Use
  Company Number: None

PATIENT
  Age: 63 Year
  Sex: Female

DRUGS (1)
  1. PIPERACILLIN SODIUM\TAZOBACTAM SODIUM [Suspect]
     Active Substance: PIPERACILLIN SODIUM\TAZOBACTAM SODIUM
     Dosage: 12 G
     Route: 042
     Dates: start: 20211231, end: 20220125

REACTIONS (1)
  - Cholestasis [Not Recovered/Not Resolved]

NARRATIVE: CASE EVENT DATE: 20220113
